FAERS Safety Report 8551379-0 (Version None)
Quarter: 2012Q3

REPORT INFORMATION
  Report Type: 
  Country: None (occurrence: None)
  Receive Date: 20120730
  Receipt Date: 20120202
  Transmission Date: 20120928
  Serious: No
  Sender: FDA-Public Use
  Company Number: US-ALLERGAN-1200668US

PATIENT
  Sex: Female

DRUGS (2)
  1. LATISSE [Suspect]
     Indication: GROWTH OF EYELASHES
     Dosage: 2 GTT, PRN
     Route: 061
     Dates: start: 20111225
  2. LATISSE [Suspect]
     Dosage: 2 GTT, UNK
     Route: 050
     Dates: start: 20110823, end: 20111224

REACTIONS (3)
  - DRUG INEFFECTIVE [None]
  - TRICHORRHEXIS [None]
  - INAPPROPRIATE SCHEDULE OF DRUG ADMINISTRATION [None]
